FAERS Safety Report 7494309-5 (Version None)
Quarter: 2011Q2

REPORT INFORMATION
  Report Type: 
  Country: None (occurrence: None)
  Receive Date: 20110520
  Receipt Date: 20110517
  Transmission Date: 20111010
  Serious: Yes (Death, Other)
  Sender: FDA-Public Use
  Company Number: PHHY2011GB41364

PATIENT
  Age: 62 Year
  Sex: Female

DRUGS (5)
  1. GLUCOSE [Suspect]
     Dosage: UNK UKN, UNK
  2. SODIUM CHLORIDE [Suspect]
     Indication: NUTRITIONAL SUPPORT
     Dosage: 350 MMOL/DAY
  3. OMEPRAZOLE [Suspect]
     Dosage: 20 MG/DAY
  4. POTASSIUM CHLORIDE [Suspect]
     Dosage: UNK UKN, UNK
  5. SODIUM BICARBONATE [Suspect]
     Dosage: UNK UKN, UNK

REACTIONS (10)
  - ACIDOSIS HYPERCHLORAEMIC [None]
  - RESPIRATORY FAILURE [None]
  - FATIGUE [None]
  - COMA SCALE ABNORMAL [None]
  - CONFUSIONAL STATE [None]
  - ENDOCARDITIS [None]
  - METABOLIC ACIDOSIS [None]
  - DYSPNOEA [None]
  - RENAL FAILURE [None]
  - GASTROENTERITIS [None]
